FAERS Safety Report 4483664-6 (Version None)
Quarter: 2004Q4

REPORT INFORMATION
  Report Type: 
  Country: None (occurrence: None)
  Receive Date: 20041020
  Receipt Date: 20041004
  Transmission Date: 20050328
  Serious: Yes (Other)
  Sender: FDA-Public Use
  Company Number: 2004058994

PATIENT
  Age: 65 Year
  Sex: Male

DRUGS (11)
  1. DILANTIN [Suspect]
     Indication: CONVULSION
     Dosage: 360 MG (4 IN 1 D), ORAL
     Route: 048
     Dates: start: 20010101
  2. INSULIN [Concomitant]
  3. EROCALCIFEROL (EROCALCIFEROL) [Concomitant]
  4. RISEDRONATE SODIUM (RISEDRONATE SODIUM) [Concomitant]
  5. RABEPRAZOLE SODIUM (RABAPREZOLE SODIUM) [Concomitant]
  6. LOTREL [Concomitant]
  7. TESTOSTERONE CIPIONATE (TESTOSTERONE CIPIONATE) [Concomitant]
  8. SIMVASTATIN [Concomitant]
  9. VALDECOXIB [Concomitant]
  10. METHADONE HCL [Concomitant]
  11. CALCIUM [Concomitant]

REACTIONS (3)
  - ARTHRITIS [None]
  - OSTEOPOROSIS [None]
  - PAIN [None]
